FAERS Safety Report 6882783-4 (Version None)
Quarter: 2010Q3

REPORT INFORMATION
  Report Type: 
  Country: None (occurrence: None)
  Receive Date: 20100727
  Receipt Date: 20100716
  Transmission Date: 20110219
  Serious: No
  Sender: FDA-Public Use
  Company Number: 015676

PATIENT
  Sex: Male
  Weight: 68 kg

DRUGS (1)
  1. KEPPRA [Suspect]
     Indication: CONVULSION
     Dosage: 1250 MG, 500 MG IN AM, 750 MG IN PM SINCE FEW YEARS ORAL)
     Route: 048

REACTIONS (5)
  - GAIT DISTURBANCE [None]
  - INAPPROPRIATE SCHEDULE OF DRUG ADMINISTRATION [None]
  - RASH [None]
  - SEDATION [None]
  - SOMNOLENCE [None]
